FAERS Safety Report 8107791-7 (Version None)
Quarter: 2011Q4

REPORT INFORMATION
  Report Type: 
  Country: None (occurrence: None)
  Receive Date: 20111227
  Receipt Date: 20110909
  Transmission Date: 20120403
  Serious: Yes (Other)
  Sender: FDA-Public Use
  Company Number: PHEH2011US03895

PATIENT
  Age: 44 Year
  Sex: Female
  Weight: 51.2 kg

DRUGS (2)
  1. IMITREX ^CERENEX^ (SUMATRIPTAN SUCCINATE) [Concomitant]
  2. GILENYA [Suspect]
     Dosage: 0.5 MG, EVERYDAY, ORAL ; 0.5 MG, EVERY DAY, ORAL
     Route: 048
     Dates: start: 20090209

REACTIONS (1)
  - DEPRESSION [None]
